FAERS Safety Report 5796443-4 (Version None)
Quarter: 2008Q3

REPORT INFORMATION
  Report Type: 
  Country: None (occurrence: None)
  Receive Date: 20080701
  Receipt Date: 20080619
  Transmission Date: 20090109
  Serious: Yes (Other)
  Sender: FDA-Public Use
  Company Number: PHNU2008DE00943

PATIENT
  Age: 70 Year

DRUGS (1)
  1. PROVAS [Suspect]
     Route: 048

REACTIONS (1)
  - DEPRESSION [None]
